FAERS Safety Report 16755334 (Version 1)
Quarter: 2019Q4

REPORT INFORMATION
  Report Type: Spontaneous
  Country: AF (occurrence: AF)
  Receive Date: 20190828
  Receipt Date: 20190828
  Transmission Date: 20200122
  Serious: No
  Sender: FDA-Public Use
  Company Number: None

PATIENT
  Age: 30 Year
  Sex: Female
  Weight: 55.1 kg

DRUGS (3)
  1. OCREVUS [Suspect]
     Active Substance: OCRELIZUMAB
     Indication: MULTIPLE SCLEROSIS
     Dosage: ?          OTHER FREQUENCY:IV INFUSION;?
     Route: 041
     Dates: start: 20190827, end: 20190827
  2. HYDROCORTISONE 100 MG [Concomitant]
     Dates: start: 20190827, end: 20190827
  3. TYLENOL 650 MG [Concomitant]
     Dates: start: 20190827, end: 20190827

REACTIONS (2)
  - Heart rate increased [None]
  - Flushing [None]

NARRATIVE: CASE EVENT DATE: 20190827
